FAERS Safety Report 10289969 (Version 2)
Quarter: 2014Q3

REPORT INFORMATION
  Report Type: Report from Study
  Country: BR (occurrence: BR)
  Receive Date: 20140710
  Receipt Date: 20140806
  Transmission Date: 20150326
  Serious: Yes (Hospitalization, Other)
  Sender: FDA-Public Use
  Company Number: PHHY2014BR084525

PATIENT
  Age: 63 Year
  Sex: Male
  Weight: 54 kg

DRUGS (2)
  1. DIOVAN [Suspect]
     Active Substance: VALSARTAN
     Indication: CEREBROVASCULAR ACCIDENT
     Dosage: 1 DF, DAILY (1 TABLET OF 320 MG, DAILY)
     Route: 048
     Dates: start: 200709
  2. DIOVAN [Suspect]
     Active Substance: VALSARTAN
     Indication: OFF LABEL USE

REACTIONS (7)
  - Hypoglycaemia [Unknown]
  - Aphasia [Not Recovered/Not Resolved]
  - Cerebrovascular accident [Not Recovered/Not Resolved]
  - Dementia Alzheimer^s type [Not Recovered/Not Resolved]
  - Hemiplegia [Not Recovered/Not Resolved]
  - Diabetes mellitus [Unknown]
  - Abasia [Not Recovered/Not Resolved]

NARRATIVE: CASE EVENT DATE: 2012
